FAERS Safety Report 14974121 (Version 1)
Quarter: 2018Q2

REPORT INFORMATION
  Report Type: Spontaneous
  Country: US (occurrence: US)
  Receive Date: 20180514
  Receipt Date: 20180514
  Transmission Date: 20180711
  Serious: No
  Sender: FDA-Public Use
  Company Number: None

PATIENT
  Age: 79 Year
  Sex: Female
  Weight: 54 kg

DRUGS (10)
  1. ANASTROZOLE. [Concomitant]
     Active Substance: ANASTROZOLE
  2. AMLODIPINE [Concomitant]
     Active Substance: AMLODIPINE BESYLATE
  3. LEVOTHYROXINE. [Concomitant]
     Active Substance: LEVOTHYROXINE
  4. TRAMADOL HCL [Concomitant]
     Active Substance: TRAMADOL HYDROCHLORIDE
  5. CARVEDILOL. [Concomitant]
     Active Substance: CARVEDILOL
  6. LANTUS SOLOSTAR [Concomitant]
     Active Substance: INSULIN GLARGINE
  7. VITAMIN D [Concomitant]
     Active Substance: CHOLECALCIFEROL
  8. CHOLESTIN [Concomitant]
  9. IBRANCE [Suspect]
     Active Substance: PALBOCICLIB
     Indication: BREAST CANCER
     Dates: start: 20180221
  10. IRBESARTAN. [Concomitant]
     Active Substance: IRBESARTAN

REACTIONS (3)
  - Dyspnoea [None]
  - Cough [None]
  - Diarrhoea [None]

NARRATIVE: CASE EVENT DATE: 20180514
